FAERS Safety Report 15907332 (Version 3)
Quarter: 2019Q1

REPORT INFORMATION
  Report Type: Spontaneous
  Country: US (occurrence: US)
  Receive Date: 20190204
  Receipt Date: 20190320
  Transmission Date: 20190417
  Serious: No
  Sender: FDA-Public Use
  Company Number: US-PFIZER INC-2019048886

PATIENT
  Age: 65 Year
  Sex: Female
  Weight: 91 kg

DRUGS (1)
  1. LYRICA [Suspect]
     Active Substance: PREGABALIN
     Indication: BACK PAIN
     Dosage: 50 MG, 2X/DAY

REACTIONS (2)
  - Dizziness [Recovering/Resolving]
  - Vision blurred [Not Recovered/Not Resolved]
